FAERS Safety Report 7518482-5 (Version None)
Quarter: 2011Q2

REPORT INFORMATION
  Report Type: 
  Country: None (occurrence: None)
  Receive Date: 20110601
  Receipt Date: 20110601
  Transmission Date: 20111010
  Serious: Yes (Death, Life-Threatening, Hospitalization)
  Sender: FDA-Public Use
  Company Number: None

PATIENT
  Age: 57 Year
  Sex: Male
  Weight: 71.6683 kg

DRUGS (1)
  1. INVEGA [Suspect]
     Indication: SCHIZOPHRENIA
     Dates: start: 20100202, end: 20101210

REACTIONS (7)
  - CEREBRAL HYGROMA [None]
  - GASTROINTESTINAL DISORDER [None]
  - ILEUS [None]
  - PNEUMONIA [None]
  - ACTIVITIES OF DAILY LIVING IMPAIRED [None]
  - NEUROLEPTIC MALIGNANT SYNDROME [None]
  - RENAL FAILURE [None]
